FAERS Safety Report 25362117 (Version 1)
Quarter: 2025Q2

REPORT INFORMATION
  Report Type: Spontaneous
  Country: US (occurrence: None)
  Receive Date: 20250524
  Receipt Date: 20250524
  Transmission Date: 20250716
  Serious: No
  Sender: FDA-CTU
  Company Number: None

PATIENT
  Age: 39 Year
  Sex: Female
  Weight: 112.5 kg

DRUGS (1)
  1. CETIRIZINE [Suspect]
     Active Substance: CETIRIZINE HYDROCHLORIDE
     Indication: Hypersensitivity
     Dates: start: 20200701, end: 20220914

REACTIONS (4)
  - Pruritus [None]
  - Urticaria [None]
  - Scratch [None]
  - Feeling abnormal [None]

NARRATIVE: CASE EVENT DATE: 20220820
